FAERS Safety Report 5747212-2 (Version None)
Quarter: 2008Q2

REPORT INFORMATION
  Report Type: 
  Country: None (occurrence: None)
  Receive Date: 20080520
  Receipt Date: 20080508
  Transmission Date: 20081010
  Serious: Yes (Hospitalization, Other)
  Sender: FDA-Public Use
  Company Number: 167320

PATIENT
  Age: 51 Year
  Sex: Female

DRUGS (5)
  1. AVONEX [Suspect]
     Indication: MULTIPLE SCLEROSIS
     Dosage: 30 UG;QW;IM
     Route: 030
     Dates: start: 20010121, end: 20061030
  2. CYLERT [Concomitant]
  3. CELEXA [Concomitant]
  4. GLUCOPHAGE [Concomitant]
  5. VIOXX [Concomitant]

REACTIONS (7)
  - ABASIA [None]
  - CARDIAC FAILURE CONGESTIVE [None]
  - DISORIENTATION [None]
  - DYSGRAPHIA [None]
  - MENTAL IMPAIRMENT [None]
  - MUSCLE SPASMS [None]
  - MYOCARDIAL INFARCTION [None]
